FAERS Safety Report 9269298 (Version 2)
Quarter: 2013Q2

REPORT INFORMATION
  Report Type: Spontaneous
  Country: US (occurrence: US)
  Receive Date: 20130503
  Receipt Date: 20130523
  Transmission Date: 20140414
  Serious: No
  Sender: FDA-Public Use
  Company Number: US-PFIZER INC-2013136933

PATIENT
  Age: 79 Year
  Sex: Male
  Weight: 88.44 kg

DRUGS (15)
  1. LYRICA [Suspect]
     Indication: NERVOUS SYSTEM DISORDER
     Dosage: 100 MG, 2X/DAY
     Route: 048
  2. LYRICA [Suspect]
     Indication: LOSS OF CONSCIOUSNESS
  3. PROPRANOLOL [Suspect]
     Indication: HEADACHE
     Dosage: 40 MG, 1X/DAY
  4. PROPRANOLOL [Suspect]
     Indication: BLOOD PRESSURE ABNORMAL
  5. CALCIUM CITRATE [Concomitant]
     Indication: ANDROGEN DEFICIENCY
     Dosage: 1260 MG(2X 630 MG), 2X/DAY
  6. VITAMIN D [Concomitant]
     Indication: ANDROGEN DEFICIENCY
     Dosage: 2000 IU(2X 1000 IU), 2X/DAY
  7. CENTRUM SILVER [Concomitant]
     Indication: VITAMIN SUPPLEMENTATION
     Dosage: UNK,1X/DAY
  8. TIMOLOL [Concomitant]
     Indication: GLAUCOMA
     Dosage: 1 GTT, 1X/DAY
     Route: 047
  9. LUMIGAN [Concomitant]
     Indication: GLAUCOMA
     Dosage: 1 GTT, 1X/DAY
     Route: 047
  10. MECLIZINE [Concomitant]
     Indication: BALANCE DISORDER
     Dosage: 50MG (2X 25 MG) IN MORNING AND 25MG IN EVENING
  11. WELCHOL [Concomitant]
     Indication: BLOOD TRIGLYCERIDES INCREASED
     Dosage: 650 MG, 3X/DAY
  12. AMITRIPTYLINE [Concomitant]
     Indication: SLEEP DISORDER
     Dosage: 100 MG, 1X/DAY
  13. OMEPRAZOLE [Concomitant]
     Indication: GASTROOESOPHAGEAL REFLUX DISEASE
     Dosage: 40 MG, 2X/DAY
  14. LIPITOR [Concomitant]
     Indication: BLOOD CHOLESTEROL ABNORMAL
     Dosage: 20 MG, 1X/DAY
  15. ACETYLSALICYLIC ACID [Concomitant]
     Indication: CARDIAC DISORDER
     Dosage: 81 MG, 1X/DAY

REACTIONS (3)
  - Off label use [Unknown]
  - Dry skin [Not Recovered/Not Resolved]
  - Pain in extremity [Unknown]
